FAERS Safety Report 6452022-7 (Version None)
Quarter: 2009Q4

REPORT INFORMATION
  Report Type: 
  Country: None (occurrence: None)
  Receive Date: 20091123
  Receipt Date: 20091112
  Transmission Date: 20100525
  Serious: Yes (Hospitalization)
  Sender: FDA-Public Use
  Company Number: US-WATSON-2009-09751

PATIENT
  Sex: Female

DRUGS (4)
  1. PREDNISONE TAB [Suspect]
     Indication: MYALGIA
     Dosage: 5 MG, DAILY
     Route: 048
     Dates: start: 20091101
  2. PREDNISONE TAB [Suspect]
     Dosage: 15 MG AM AND 15MG PM
     Route: 048
     Dates: start: 20091027
  3. PREDNISONE TAB [Suspect]
     Dosage: UNK
     Route: 048
     Dates: start: 20080101
  4. PREDNISONE TAB [Suspect]
     Dosage: UNK
     Dates: start: 20090925

REACTIONS (8)
  - CONFUSIONAL STATE [None]
  - FATIGUE [None]
  - HALLUCINATION, VISUAL [None]
  - HEART RATE INCREASED [None]
  - INSOMNIA [None]
  - MANIA [None]
  - MEMORY IMPAIRMENT [None]
  - PSYCHOTIC DISORDER [None]
